FAERS Safety Report 6165646-1 (Version None)
Quarter: 2009Q2

REPORT INFORMATION
  Report Type: 
  Country: None (occurrence: None)
  Receive Date: 20090423
  Receipt Date: 20090413
  Transmission Date: 20091009
  Serious: Yes (Death, Hospitalization)
  Sender: FDA-Public Use
  Company Number: US-WYE-H08497809

PATIENT
  Sex: Male

DRUGS (18)
  1. PROTONIX [Suspect]
     Dosage: UNKNOWN
     Dates: start: 20061207
  2. CEFEPIME [Suspect]
     Dosage: UNKNOWN
     Dates: start: 20061124
  3. NOREPINEPHRINE [Suspect]
     Dosage: UNKNOWN
     Dates: start: 20081208
  4. DIPRIVAN [Suspect]
     Dosage: UNKNOWN
     Dates: start: 20061207
  5. PIPERACILLIN SODIUM AND TAZOBACTAM SODIUM [Suspect]
     Dosage: UNKNOWN
     Dates: start: 20061207
  6. MICAFUNGIN SODIUM [Suspect]
     Dosage: UNKNOWN
     Dates: start: 20061123
  7. ALBUTEROL [Concomitant]
     Route: 048
  8. SIMVASTATIN [Concomitant]
  9. WARFARIN SODIUM [Concomitant]
  10. DIGOXIN [Concomitant]
  11. FUROSEMIDE [Concomitant]
  12. POTASSIUM CHLORIDE [Concomitant]
  13. AZITHROMYCIN [Concomitant]
     Dosage: 250 MG, FREQUENCY UNKNOWN
     Route: 048
  14. CYANOCOBALAMIN [Concomitant]
     Dosage: 1000 MCG/ML INJECTION, FREQUENCY UNKNOWN
  15. LINEZOLID [Concomitant]
     Dosage: UNKNOWN
     Dates: start: 20061125
  16. CUBICIN [Concomitant]
     Dosage: UNKNOWN
     Dates: start: 20061201
  17. NEUPOGEN [Concomitant]
     Dosage: UNKNOWN
     Dates: start: 20061203
  18. PROCRIT [Suspect]
     Dosage: 40,000 U/ML INJECTION, FREQUENCY UNKNOWN
     Dates: start: 20061030

REACTIONS (1)
  - SEPSIS [None]
